FAERS Safety Report 12600610 (Version 1)
Quarter: 2016Q3

REPORT INFORMATION
  Report Type: Spontaneous
  Country: DE (occurrence: DE)
  Receive Date: 20160727
  Receipt Date: 20160727
  Transmission Date: 20161109
  Serious: Yes (Death)
  Sender: FDA-Public Use
  Company Number: DE-FRESENIUS KABI-FK201604763

PATIENT

DRUGS (1)
  1. PROPOFOL 2% MCT FRESENIUS [Suspect]
     Active Substance: PROPOFOL
     Indication: INTENTIONAL PRODUCT MISUSE
     Route: 065

REACTIONS (2)
  - Intentional product misuse [Fatal]
  - Completed suicide [Fatal]
